FAERS Safety Report 7293883-1 (Version None)
Quarter: 2011Q1

REPORT INFORMATION
  Report Type: 
  Country: None (occurrence: None)
  Receive Date: 20110202
  Receipt Date: 20110124
  Transmission Date: 20110831
  Serious: Yes (Hospitalization)
  Sender: FDA-Public Use
  Company Number: LEO-2011-00124

PATIENT
  Age: 76 Year
  Sex: Male

DRUGS (1)
  1. INNOHEP [Suspect]
     Indication: THROMBOSIS PROPHYLAXIS
     Dosage: SUBCUTANEOUS
     Route: 058

REACTIONS (3)
  - CAROTID ARTERY THROMBOSIS [None]
  - TREATMENT FAILURE [None]
  - CEREBROVASCULAR ACCIDENT [None]
